FAERS Safety Report 16776147 (Version 1)
Quarter: 2019Q3

REPORT INFORMATION
  Report Type: Spontaneous
  Country: US (occurrence: US)
  Receive Date: 20190905
  Receipt Date: 20190905
  Transmission Date: 20191005
  Serious: No
  Sender: FDA-Public Use
  Company Number: US-PFIZER INC-2019379651

PATIENT
  Age: 44 Year
  Sex: Male
  Weight: 111.11 kg

DRUGS (1)
  1. GENOTROPIN MQ [Suspect]
     Active Substance: SOMATROPIN
     Indication: HYPOPITUITARISM
     Dosage: 0.4 MG, WEEKLY [EVERY 7 DAYS]
     Route: 058
     Dates: start: 201906

REACTIONS (6)
  - Drug ineffective for unapproved indication [Unknown]
  - Headache [Not Recovered/Not Resolved]
  - Pre-existing condition improved [Unknown]
  - Feeling abnormal [Unknown]
  - Off label use [Unknown]
  - Therapeutic response unexpected [Unknown]
